FAERS Safety Report 5948082-X (Version None)
Quarter: 2008Q4

REPORT INFORMATION
  Report Type: 
  Country: None (occurrence: None)
  Receive Date: 20081107
  Receipt Date: 20081022
  Transmission Date: 20090506
  Serious: Yes (Hospitalization)
  Sender: FDA-Public Use
  Company Number: 001#1#2008-00591

PATIENT
  Sex: Female

DRUGS (1)
  1. NEUPRO [Suspect]
     Dosage: TRANSDERMAL
     Route: 062

REACTIONS (2)
  - SKIN EXFOLIATION [None]
  - SKIN REACTION [None]
